FAERS Safety Report 19692812 (Version 2)
Quarter: 2021Q3

REPORT INFORMATION
  Report Type: Spontaneous
  Country: DE (occurrence: DE)
  Receive Date: 20210813
  Receipt Date: 20210923
  Transmission Date: 20211014
  Serious: Yes (Death, Hospitalization, Other)
  Sender: FDA-Public Use
  Company Number: DE-AUROBINDO-AUR-APL-2021-033884

PATIENT
  Age: 93 Year
  Sex: Female
  Weight: 42 kg

DRUGS (3)
  1. TRANEXAMIC [Suspect]
     Active Substance: TRANEXAMIC ACID
     Indication: PRODUCT USED FOR UNKNOWN INDICATION
     Dosage: 1000 MILLIGRAM
     Route: 042
     Dates: start: 20190802, end: 20190802
  2. UNACID (AMPICILLIN SODIUM/SULBACTAM SODIUM) [Suspect]
     Active Substance: AMPICILLIN SODIUM\SULBACTAM SODIUM
     Indication: PRODUCT USED FOR UNKNOWN INDICATION
     Dosage: 6 GRAM, ONCE A DAY (3 G, 2X / DAY (6 AM AND AT 10 PM))
     Route: 042
     Dates: start: 20190802, end: 20190802
  3. PANTOPRAZOLE [Concomitant]
     Active Substance: PANTOPRAZOLE
     Indication: PRODUCT USED FOR UNKNOWN INDICATION
     Dosage: UNK
     Route: 065
     Dates: start: 20190731, end: 20190802

REACTIONS (17)
  - Blood potassium increased [Unknown]
  - Blood magnesium increased [Unknown]
  - Blood urea increased [Unknown]
  - Cough [Unknown]
  - Blood cholinesterase decreased [Unknown]
  - Blood creatine phosphokinase MB increased [Unknown]
  - Blood uric acid increased [Unknown]
  - Poisoning [Unknown]
  - Blood calcium decreased [Unknown]
  - Coagulopathy [Unknown]
  - Hepatic failure [Unknown]
  - Vomiting [Unknown]
  - Blood chloride increased [Unknown]
  - Blood creatine phosphokinase increased [Unknown]
  - Aspiration [Fatal]
  - Gastrointestinal haemorrhage [Fatal]
  - Dysphonia [Unknown]

NARRATIVE: CASE EVENT DATE: 20190730
